FAERS Safety Report 11500438 (Version 1)
Quarter: 2015Q3

REPORT INFORMATION
  Report Type: Spontaneous
  Country: DE (occurrence: DE)
  Receive Date: 20150914
  Receipt Date: 20150914
  Transmission Date: 20151125
  Serious: Yes (Hospitalization)
  Sender: FDA-Public Use
  Company Number: DE-BIOGENIDEC-2015BI120602

PATIENT
  Age: 69 Year
  Sex: Female
  Weight: 65 kg

DRUGS (2)
  1. FAMPYRA [Suspect]
     Active Substance: DALFAMPRIDINE
     Indication: MULTIPLE SCLEROSIS
     Route: 048
     Dates: start: 20150817
  2. FAMPYRA [Suspect]
     Active Substance: DALFAMPRIDINE
     Indication: MULTIPLE SCLEROSIS
     Route: 048
     Dates: start: 20111101, end: 20140617

REACTIONS (5)
  - Amnesia [Not Recovered/Not Resolved]
  - Fall [Recovered/Resolved]
  - Cerebral haemorrhage [Recovered/Resolved]
  - Pruritus [Not Recovered/Not Resolved]
  - Craniocerebral injury [Recovered/Resolved with Sequelae]

NARRATIVE: CASE EVENT DATE: 20140618
